FAERS Safety Report 15595921 (Version 4)
Quarter: 2018Q4

REPORT INFORMATION
  Report Type: Spontaneous
  Country: FR (occurrence: FR)
  Receive Date: 20181107
  Receipt Date: 20181219
  Transmission Date: 20190205
  Serious: Yes (Other)
  Sender: FDA-Public Use
  Company Number: FR-ASTRAZENECA-2018SF43660

PATIENT
  Age: 72 Year
  Sex: Female
  Weight: 68 kg

DRUGS (2)
  1. XGEVA [Concomitant]
     Active Substance: DENOSUMAB
     Indication: BONE CANCER
     Route: 065
     Dates: start: 2014
  2. FASLODEX [Suspect]
     Active Substance: FULVESTRANT
     Indication: PLEURAL NEOPLASM
     Route: 030
     Dates: start: 2011, end: 20181021

REACTIONS (15)
  - Skin plaque [Unknown]
  - Pigmentation disorder [Unknown]
  - Nausea [Unknown]
  - Presyncope [Unknown]
  - Hyperhidrosis [Unknown]
  - Injection site hypersensitivity [Recovering/Resolving]
  - Pruritus [Unknown]
  - Visual impairment [Unknown]
  - Off label use [Unknown]
  - Feeling abnormal [Recovering/Resolving]
  - Product use issue [Unknown]
  - Injection site pruritus [Unknown]
  - Rash [Unknown]
  - Injection site rash [Unknown]
  - Fatigue [Unknown]

NARRATIVE: CASE EVENT DATE: 2011
